FAERS Safety Report 8795769 (Version 2)
Quarter: 2012Q4

REPORT INFORMATION
  Report Type: 
  Country: US (occurrence: US)
  Receive Date: 20120919
  Receipt Date: 20121008
  Transmission Date: 20130627
  Serious: No
  Sender: FDA-Public Use
  Company Number: US-ASTRAZENECA-2012SE51958

PATIENT
  Age: 52 Year
  Sex: Female

DRUGS (1)
  1. NEXIUM [Suspect]
     Indication: GASTROOESOPHAGEAL REFLUX DISEASE
     Route: 048
     Dates: start: 20070122

REACTIONS (6)
  - Dyspepsia [Unknown]
  - Erosive oesophagitis [Unknown]
  - Gastritis [Unknown]
  - Gastritis erosive [Unknown]
  - Intentional drug misuse [Unknown]
  - Drug dose omission [Unknown]
